FAERS Safety Report 10711503 (Version 2)
Quarter: 2015Q1

REPORT INFORMATION
  Report Type: Report from Study
  Country: NL (occurrence: NL)
  Receive Date: 20150114
  Receipt Date: 20150316
  Transmission Date: 20150721
  Serious: Yes (Other)
  Sender: FDA-Public Use
  Company Number: NL-TEVA-533328ISR

PATIENT
  Age: 57 Year
  Sex: Female

DRUGS (6)
  1. SALBUTAMOL CYCLOCAPS [Concomitant]
     Dosage: 2 DOSAGE FORMS DAILY; 1 DOSAGE FORM IS 1 INHALATION
  2. OMEPRAZOL [Concomitant]
     Active Substance: OMEPRAZOLE
  3. COPAXONE [Suspect]
     Active Substance: GLATIRAMER ACETATE
     Indication: MULTIPLE SCLEROSIS
     Dosage: 20 MILLIGRAM DAILY;
     Route: 058
     Dates: start: 20100420
  4. BECLOMETSON [Concomitant]
     Dosage: 2 DOSAGE FORMS DAILY; 1 DOSAGE FORM IS 1 INHALATION
  5. PARACETAMOL [Concomitant]
     Active Substance: ACETAMINOPHEN
     Dosage: 6 DOSAGE FORMS DAILY;
  6. IBUPROFEN. [Concomitant]
     Active Substance: IBUPROFEN
     Dosage: 1200 MILLIGRAM DAILY;

REACTIONS (2)
  - Blood glucose increased [Not Recovered/Not Resolved]
  - Vulvovaginal mycotic infection [Recovered/Resolved]

NARRATIVE: CASE EVENT DATE: 20141101
